FAERS Safety Report 6163142-9 (Version None)
Quarter: 2009Q2

REPORT INFORMATION
  Report Type: 
  Country: None (occurrence: None)
  Receive Date: 20090420
  Receipt Date: 20090420
  Transmission Date: 20091009
  Serious: No
  Sender: FDA-Public Use
  Company Number: None

PATIENT
  Age: 39 Year
  Sex: Male
  Weight: 74.8 kg

DRUGS (8)
  1. VARENICLINE [Suspect]
     Indication: SMOKING CESSATION THERAPY
     Dosage: 1 MG BID PO
     Route: 048
     Dates: start: 20071106, end: 20080417
  2. ACETAMINOPHEN [Concomitant]
  3. CEPHALEXIN [Concomitant]
  4. CETIRIZINE [Concomitant]
  5. CYCLOBENZAPRINE [Concomitant]
  6. DESONIDE TOPICAL CR [Concomitant]
  7. DILTIAZEM HCL [Concomitant]
  8. KETOROLAC [Concomitant]

REACTIONS (1)
  - NIGHTMARE [None]
